FAERS Safety Report 4487875-5 (Version None)
Quarter: 2004Q4

REPORT INFORMATION
  Report Type: 
  Country: None (occurrence: None)
  Receive Date: 20041025
  Receipt Date: 20041012
  Transmission Date: 20050328
  Serious: Yes (Disabling)
  Sender: FDA-Public Use
  Company Number: 2004076887

PATIENT
  Age: 64 Year
  Sex: Male

DRUGS (1)
  1. LIPITOR [Suspect]
     Indication: BLOOD CHOLESTEROL INCREASED
     Dosage: 20 MG (1 IN 1 D)
     Dates: start: 20030101

REACTIONS (10)
  - ANAEMIA [None]
  - ARTHRITIS [None]
  - DRUG HYPERSENSITIVITY [None]
  - ELECTROPHORESIS PROTEIN [None]
  - IMMUNE SYSTEM DISORDER [None]
  - INFLAMMATION [None]
  - MYALGIA [None]
  - NEPHROTIC SYNDROME [None]
  - RED BLOOD CELL SEDIMENTATION RATE INCREASED [None]
  - RHEUMATOID FACTOR POSITIVE [None]
